FAERS Safety Report 24532279 (Version 1)
Quarter: 2024Q4

REPORT INFORMATION
  Report Type: Report from Study
  Country: US (occurrence: US)
  Receive Date: 20241022
  Receipt Date: 20241022
  Transmission Date: 20250115
  Serious: Yes (Other)
  Sender: SERVIER
  Company Number: US-SERVIER-S24013257

PATIENT

DRUGS (1)
  1. TIBSOVO [Suspect]
     Active Substance: IVOSIDENIB
     Indication: Brain neoplasm malignant
     Dosage: 500 MG, QD
     Route: 048
     Dates: start: 20240730, end: 202410

REACTIONS (3)
  - Suicidal ideation [Unknown]
  - Depression [Unknown]
  - Mood altered [Unknown]

NARRATIVE: CASE EVENT DATE: 20240101
